FAERS Safety Report 7150003-1 (Version None)
Quarter: 2010Q4

REPORT INFORMATION
  Report Type: 
  Country: None (occurrence: None)
  Receive Date: 20101210
  Receipt Date: 20101203
  Transmission Date: 20110411
  Serious: Yes (Other)
  Sender: FDA-Public Use
  Company Number: US-SHIRE-SPV1-2010-02117

PATIENT
  Sex: Male
  Weight: 32.653 kg

DRUGS (8)
  1. INTUNIV [Suspect]
     Indication: ATTENTION DEFICIT/HYPERACTIVITY DISORDER
     Dosage: 4 MG, 1X/DAY:QD
     Route: 048
     Dates: start: 20101101, end: 20101101
  2. INTUNIV [Suspect]
     Dosage: 3 MG, 1X/DAY:QD
     Route: 048
     Dates: start: 20101101
  3. INTUNIV [Suspect]
     Dosage: 1 MG, 1X/DAY:QD
     Route: 048
     Dates: start: 20101001, end: 20101001
  4. INTUNIV [Suspect]
     Dosage: 2 MG, 1X/DAY:QD
     Route: 048
     Dates: start: 20101001, end: 20101001
  5. INTUNIV [Suspect]
     Dosage: 3 MG, 1X/DAY:QD
     Route: 048
     Dates: start: 20101001, end: 20101101
  6. RISPERIDONE [Suspect]
     Indication: ATTENTION DEFICIT/HYPERACTIVITY DISORDER
     Dosage: 1.5 MG, 1X/DAY:QD
     Route: 048
     Dates: start: 20080101
  7. VYVANSE [Suspect]
     Indication: ATTENTION DEFICIT/HYPERACTIVITY DISORDER
     Dosage: 40 MG, 1X/DAY:QD
     Route: 048
     Dates: start: 20080101
  8. ALLEGRA [Concomitant]
     Indication: SEASONAL ALLERGY
     Dosage: 30 MG, 2X/DAY:BID
     Route: 048
     Dates: start: 20050101

REACTIONS (5)
  - CONVULSION [None]
  - EXCESSIVE EYE BLINKING [None]
  - EYE PAIN [None]
  - MUSCLE SPASMS [None]
  - MUSCLE TWITCHING [None]
